FAERS Safety Report 9671851 (Version 1)
Quarter: 2013Q4

REPORT INFORMATION
  Report Type: Report from Study
  Country: CN (occurrence: CN)
  Receive Date: 20131106
  Receipt Date: 20131106
  Transmission Date: 20140711
  Serious: Yes (Other)
  Sender: FDA-Public Use
  Company Number: CN-SA-2013SA113545

PATIENT
  Sex: 0

DRUGS (3)
  1. LEFLUNOMIDE [Suspect]
     Indication: GLOMERULONEPHRITIS MEMBRANOUS
     Route: 065
  2. LEFLUNOMIDE [Suspect]
     Indication: GLOMERULONEPHRITIS MEMBRANOUS
     Route: 065
  3. PREDNISONE [Concomitant]
     Indication: GLOMERULONEPHRITIS MEMBRANOUS
     Route: 048

REACTIONS (2)
  - Liver injury [Recovered/Resolved]
  - Transaminases increased [Recovered/Resolved]
